FAERS Safety Report 5033741-6 (Version None)
Quarter: 2006Q2

REPORT INFORMATION
  Report Type: 
  Country: None (occurrence: None)
  Receive Date: 20060623
  Receipt Date: 20060615
  Transmission Date: 20061013
  Serious: Yes (Life-Threatening)
  Sender: FDA-Public Use
  Company Number: 2006AP02770

PATIENT
  Age: 9811 Day
  Sex: Female

DRUGS (9)
  1. ANAPEINE [Suspect]
     Indication: EPIDURAL ANAESTHESIA
     Route: 008
     Dates: start: 20060615, end: 20060615
  2. ANAPEINE [Suspect]
     Route: 008
     Dates: start: 20060615, end: 20060615
  3. FENTANEST [Suspect]
     Indication: EPIDURAL ANAESTHESIA
     Route: 008
     Dates: start: 20060615, end: 20060615
  4. PREGLANDIN [Concomitant]
     Dates: start: 20060615, end: 20060615
  5. FLUMARIN [Concomitant]
     Route: 042
     Dates: start: 20060615, end: 20060615
  6. DOPAMINE HCL [Concomitant]
     Dates: start: 20060615, end: 20060615
  7. CABASER [Concomitant]
     Route: 048
     Dates: start: 20060615
  8. CALONAL [Concomitant]
     Route: 048
     Dates: start: 20060615
  9. VOLTAREN [Concomitant]
     Route: 054
     Dates: start: 20060615

REACTIONS (5)
  - BLOOD PRESSURE DECREASED [None]
  - DEPRESSED LEVEL OF CONSCIOUSNESS [None]
  - DRUG EXPOSURE DURING PREGNANCY [None]
  - LOSS OF CONSCIOUSNESS [None]
  - MUSCLE RIGIDITY [None]
